FAERS Safety Report 19259208 (Version 1)
Quarter: 2021Q2

REPORT INFORMATION
  Report Type: Report from Study
  Country: None (occurrence: US)
  Receive Date: 20210514
  Receipt Date: 20210514
  Transmission Date: 20210717
  Serious: No
  Sender: FDA-Public Use
  Company Number: US-ABBVIE-21K-163-3891277-00

PATIENT
  Sex: Female

DRUGS (1)
  1. HUMIRA [Suspect]
     Active Substance: ADALIMUMAB
     Indication: PSORIASIS
     Dosage: CITRATE FREE
     Route: 058

REACTIONS (3)
  - Bronchitis [Not Recovered/Not Resolved]
  - Abdominal mass [Not Recovered/Not Resolved]
  - Ultrasound scan vagina abnormal [Not Recovered/Not Resolved]
